FAERS Safety Report 4431831-X (Version None)
Quarter: 2004Q3

REPORT INFORMATION
  Report Type: 
  Country: None (occurrence: None)
  Receive Date: 20040818
  Receipt Date: 20040728
  Transmission Date: 20050211
  Serious: Yes (Hospitalization)
  Sender: FDA-Public Use
  Company Number: US_0407104485

PATIENT
  Age: 84 Year
  Sex: Female
  Weight: 67 kg

DRUGS (12)
  1. FORTEO [Suspect]
     Indication: OSTEOPOROSIS
     Dates: start: 20040630
  2. ALLEGRA [Concomitant]
  3. TOPROL-XL [Concomitant]
  4. NEXIUM [Concomitant]
  5. MAXZIDE [Concomitant]
  6. AMBIEN [Concomitant]
  7. PULMICORT [Concomitant]
  8. NASOCORT (BUDESONIDE) [Concomitant]
  9. ACETYLSALICYLIC ACID SRT [Concomitant]
  10. CITRICAL (CALCIUM CARBONATE) [Concomitant]
  11. VITAMIN E [Concomitant]
  12. MULTIVITAMIN [Concomitant]

REACTIONS (1)
  - PAIN EXACERBATED [None]
